FAERS Safety Report 6478353-2 (Version None)
Quarter: 2009Q4

REPORT INFORMATION
  Report Type: 
  Country: None (occurrence: None)
  Receive Date: 20091207
  Receipt Date: 20091126
  Transmission Date: 20100525
  Serious: Yes (Other)
  Sender: FDA-Public Use
  Company Number: BR-ASTRAZENECA-2009SE29197

PATIENT
  Age: 63 Year
  Sex: Female
  Weight: 69 kg

DRUGS (3)
  1. ATACAND [Suspect]
     Indication: HYPERTENSION
     Route: 048
     Dates: start: 20070101
  2. SELOZOC [Suspect]
     Indication: HYPERTENSION
     Route: 048
     Dates: start: 20070101
  3. SELOZOC [Suspect]
     Route: 048
     Dates: start: 20070101

REACTIONS (1)
  - ARTERIAL OCCLUSIVE DISEASE [None]
